FAERS Safety Report 19838308 (Version 1)
Quarter: 2021Q3

REPORT INFORMATION
  Report Type: Report from Study
  Country: US (occurrence: US)
  Receive Date: 20210916
  Receipt Date: 20210916
  Transmission Date: 20211014
  Serious: Yes (Hospitalization)
  Sender: FDA-Public Use
  Company Number: US-ROCHE-2890219

PATIENT
  Age: 76 Year
  Sex: Male

DRUGS (2)
  1. IBRUTINIB [Suspect]
     Active Substance: IBRUTINIB
     Indication: CHRONIC LYMPHOCYTIC LEUKAEMIA
     Dosage: 420 MG PO QD FOR 15 CYCLES?LAST ADMINISTERED DATE: 11/JUL/2021
     Route: 048
     Dates: start: 20210706
  2. OBINUTUZUMAB. [Suspect]
     Active Substance: OBINUTUZUMAB
     Indication: CHRONIC LYMPHOCYTIC LEUKAEMIA
     Dosage: 100 MG IV ON C1D1, 900 MG IV ON C1D2, 1000 MG IV ON C1D8 + C1D15, C2?6D1?LAST ADMINISTERED DATE: 07/
     Route: 042
     Dates: start: 20210706

REACTIONS (2)
  - Febrile neutropenia [Not Recovered/Not Resolved]
  - Joint effusion [Not Recovered/Not Resolved]

NARRATIVE: CASE EVENT DATE: 20210711
